FAERS Safety Report 15475473 (Version 1)
Quarter: 2018Q4

REPORT INFORMATION
  Report Type: Spontaneous
  Country: CH (occurrence: CH)
  Receive Date: 20181008
  Receipt Date: 20181008
  Transmission Date: 20190205
  Serious: Yes (Life-Threatening, Hospitalization)
  Sender: FDA-Public Use
  Company Number: CH-TEVA-2018-CH-959812

PATIENT
  Age: 65 Year
  Sex: Male

DRUGS (17)
  1. LISITRIL [Suspect]
     Active Substance: LISINOPRIL
     Route: 048
     Dates: start: 20180804
  2. TORASEMIDE [Interacting]
     Active Substance: TORSEMIDE
     Route: 048
     Dates: end: 20180831
  3. LISITRIL [Suspect]
     Active Substance: LISINOPRIL
     Route: 048
     Dates: start: 20180804
  4. ATORVA [Concomitant]
     Route: 048
  5. EPLERENONE. [Interacting]
     Active Substance: EPLERENONE
     Route: 048
     Dates: end: 20180731
  6. PANTOPRAZOL [Concomitant]
     Active Substance: PANTOPRAZOLE SODIUM
     Dosage: AS NECESSARY
     Route: 048
  7. EPLERENONE. [Interacting]
     Active Substance: EPLERENONE
     Route: 048
     Dates: end: 20180731
  8. AMIODARONE [Interacting]
     Active Substance: AMIODARONE
     Route: 048
  9. AMIODARONE [Interacting]
     Active Substance: AMIODARONE
     Route: 048
  10. LISITRIL [Suspect]
     Active Substance: LISINOPRIL
     Route: 048
     Dates: end: 20180731
  11. LISITRIL [Suspect]
     Active Substance: LISINOPRIL
     Route: 048
     Dates: end: 20180731
  12. OLFEN [Suspect]
     Active Substance: DICLOFENAC SODIUM
     Dosage: AS NECESSARY
     Route: 048
     Dates: start: 201808, end: 201808
  13. MARCOUMAR [Concomitant]
     Active Substance: PHENPROCOUMON
     Route: 048
  14. EZETROL [Concomitant]
     Active Substance: EZETIMIBE
     Route: 048
  15. OLFEN [Interacting]
     Active Substance: DICLOFENAC SODIUM
     Dosage: AS NECESSARY
     Route: 048
     Dates: start: 201808, end: 201808
  16. TORASEMIDE [Interacting]
     Active Substance: TORSEMIDE
     Route: 048
     Dates: end: 20180831
  17. ASPIRIN CARDIO [Suspect]
     Active Substance: ASPIRIN
     Route: 048

REACTIONS (3)
  - Hyperkalaemia [Recovering/Resolving]
  - Acute kidney injury [Recovering/Resolving]
  - Drug interaction [Recovering/Resolving]

NARRATIVE: CASE EVENT DATE: 201807
